FAERS Safety Report 4523243-5 (Version None)
Quarter: 2004Q4

REPORT INFORMATION
  Report Type: 
  Country: None (occurrence: None)
  Receive Date: 20041208
  Receipt Date: 20041208
  Transmission Date: 20050328
  Serious: No
  Sender: FDA-Public Use
  Company Number: None

PATIENT
  Age: 57 Year
  Sex: Male
  Weight: 115 kg

DRUGS (2)
  1. VANCOMYCIN [Suspect]
     Dosage: 1 GM IV Q 25 H
     Route: 042
     Dates: start: 20041207
  2. VANCOMYCIN [Suspect]
     Dosage: 1 GM IV Q 25 H
     Route: 042
     Dates: start: 20041208

REACTIONS (3)
  - PRURITUS [None]
  - RASH GENERALISED [None]
  - RASH MACULO-PAPULAR [None]
